FAERS Safety Report 8243073-0 (Version None)
Quarter: 2012Q1

REPORT INFORMATION
  Report Type: 
  Country: None (occurrence: None)
  Receive Date: 20120314
  Receipt Date: 20100727
  Transmission Date: 20120608
  Serious: Yes (Other)
  Sender: FDA-Public Use
  Company Number: PHHY2010US45197

PATIENT
  Age: 34 Year
  Sex: Female

DRUGS (1)
  1. FANAPT [Suspect]
     Indication: BIPOLAR DISORDER
     Dosage: 6 MG, BID, ORAL
     Route: 048
     Dates: start: 20100615, end: 20100706

REACTIONS (1)
  - WEIGHT INCREASED [None]
